FAERS Safety Report 9320430 (Version 3)
Quarter: 2013Q4

REPORT INFORMATION
  Report Type: Spontaneous
  Country: JP (occurrence: JP)
  Receive Date: 20130530
  Receipt Date: 20131007
  Transmission Date: 20140711
  Serious: Yes (Hospitalization)
  Sender: FDA-Public Use
  Company Number: JP-B.I. PHARMACEUTICALS,INC./RIDGEFIELD-2013-BI-14844NB

PATIENT
  Age: 61 Year
  Sex: Male
  Weight: 54 kg

DRUGS (6)
  1. SPIRIVA [Suspect]
     Indication: CHRONIC OBSTRUCTIVE PULMONARY DISEASE
     Dosage: 18 MCG
     Route: 055
     Dates: start: 20130117, end: 20130515
  2. SPIRIVA [Suspect]
     Dosage: 5 MCG
     Route: 055
     Dates: start: 20130516
  3. SULTANOL [Concomitant]
     Indication: CHRONIC OBSTRUCTIVE PULMONARY DISEASE
     Route: 055
     Dates: start: 20130117, end: 20130515
  4. BENZYLHYDROCHLOROTHIAZIDE [Concomitant]
     Indication: HYPERTENSION
     Dosage: 8 MG
     Route: 048
     Dates: start: 20121220
  5. KALLIDINOGENASE [Concomitant]
     Indication: HYPERTENSION
     Dosage: 50 U
     Route: 048
     Dates: start: 20121220
  6. PH-797804/PLACEBO [Concomitant]
     Indication: CHRONIC OBSTRUCTIVE PULMONARY DISEASE
     Dosage: 0.25 NR
     Route: 048
     Dates: start: 20130207, end: 20130502

REACTIONS (1)
  - Radius fracture [Recovered/Resolved]
